FAERS Safety Report 22286911 (Version 2)
Quarter: 2023Q2

REPORT INFORMATION
  Report Type: Report from Study
  Country: US (occurrence: US)
  Receive Date: 20230505
  Receipt Date: 20230516
  Transmission Date: 20230721
  Serious: Yes (Other)
  Sender: FDA-Public Use
  Company Number: US-AIMMUNE THERAPEUTICS, INC.-2023AIMT00396

PATIENT

DRUGS (3)
  1. ALLERGENIC EXTRACT- PEANUT ARACHIS HYPOGAEA [Suspect]
     Active Substance: ALLERGENIC EXTRACT- PEANUT ARACHIS HYPOGAEA
     Indication: Food allergy
     Dosage: IDE (0.5MG-6MG), ONCE
     Route: 048
     Dates: start: 20230202, end: 20230202
  2. ALLERGENIC EXTRACT- PEANUT ARACHIS HYPOGAEA [Suspect]
     Active Substance: ALLERGENIC EXTRACT- PEANUT ARACHIS HYPOGAEA
     Dosage: 40 MG, 1X/DAY
     Route: 048
     Dates: start: 20230405
  3. ALLERGENIC EXTRACT- PEANUT ARACHIS HYPOGAEA [Suspect]
     Active Substance: ALLERGENIC EXTRACT- PEANUT ARACHIS HYPOGAEA
     Dosage: 40 MG, ONCE, LAST DOSE PRIOR EVENT
     Route: 048
     Dates: start: 20230420, end: 20230420

REACTIONS (9)
  - Anaphylactic reaction [Recovered/Resolved]
  - Chest discomfort [Recovered/Resolved]
  - Rash macular [Recovered/Resolved]
  - Erythema [Recovered/Resolved]
  - Abdominal pain upper [Recovered/Resolved]
  - Wheezing [Recovered/Resolved]
  - Throat irritation [Recovered/Resolved]
  - Cough [Recovered/Resolved]
  - Throat tightness [Recovered/Resolved]

NARRATIVE: CASE EVENT DATE: 20230420
